FAERS Safety Report 5493470-1 (Version None)
Quarter: 2007Q4

REPORT INFORMATION
  Report Type: 
  Country: None (occurrence: None)
  Receive Date: 20071023
  Receipt Date: 20071010
  Transmission Date: 20080405
  Serious: Yes (Death, Other)
  Sender: FDA-Public Use
  Company Number: US-ELI_LILLY_AND_COMPANY-US200710000178

PATIENT
  Age: 64 Year
  Sex: Male

DRUGS (1)
  1. XIGRIS [Suspect]
     Indication: SEPSIS
     Dosage: UNK, UNK

REACTIONS (4)
  - CATHETER SITE HAEMORRHAGE [None]
  - DEATH [None]
  - RENAL FAILURE [None]
  - WOUND HAEMORRHAGE [None]
